FAERS Safety Report 14503102 (Version 1)
Quarter: 2018Q1

REPORT INFORMATION
  Report Type: Spontaneous
  Country: US (occurrence: US)
  Receive Date: 20180208
  Receipt Date: 20180208
  Transmission Date: 20180509
  Serious: No
  Sender: FDA-Public Use
  Company Number: US-PFIZER INC-2018054965

PATIENT
  Age: 86 Year
  Sex: Male
  Weight: 81.65 kg

DRUGS (1)
  1. ADVIL PM [Suspect]
     Active Substance: DIPHENHYDRAMINE CITRATE\IBUPROFEN
     Indication: SLEEP DISORDER
     Dosage: [IBUPROFEN 200MG/DIPHENHYDRAMINE 35MG]. TWO TABLETS AT NIGHT BEFORE BED

REACTIONS (5)
  - Retching [Not Recovered/Not Resolved]
  - Vertigo [Recovering/Resolving]
  - Feeling abnormal [Unknown]
  - Nausea [Recovering/Resolving]
  - Intentional product misuse [Unknown]

NARRATIVE: CASE EVENT DATE: 20180203
